FAERS Safety Report 6636915-3 (Version None)
Quarter: 2010Q1

REPORT INFORMATION
  Report Type: 
  Country: None (occurrence: None)
  Receive Date: 20100316
  Receipt Date: 20100310
  Transmission Date: 20100710
  Serious: Yes (Death)
  Sender: FDA-Public Use
  Company Number: PL-BAYER-201012699GPV

PATIENT
  Age: 93 Year
  Sex: Female
  Weight: 56 kg

DRUGS (10)
  1. RANTUDIL [Suspect]
     Indication: OSTEOARTHRITIS
     Route: 048
     Dates: end: 20091214
  2. FEBROFEN [Suspect]
     Indication: OSTEOARTHRITIS
     Route: 048
     Dates: end: 20091214
  3. MAJAMIL PROLONGATUM [Suspect]
     Indication: OSTEOARTHRITIS
     Route: 048
     Dates: end: 20091214
  4. ENARENAL [Concomitant]
  5. DIGOXIN [Concomitant]
  6. KALIPOZ [Concomitant]
  7. BISOCARD [Concomitant]
  8. FUROSEMID [Concomitant]
  9. METOCLOPRAMIDE [Concomitant]
  10. PIASCLEDINE [Concomitant]
     Dosage: 300

REACTIONS (5)
  - CARDIAC FAILURE [None]
  - CARDIOVASCULAR INSUFFICIENCY [None]
  - GASTROINTESTINAL DISORDER [None]
  - RESPIRATORY FAILURE [None]
  - UPPER GASTROINTESTINAL HAEMORRHAGE [None]
